FAERS Safety Report 24605805 (Version 2)
Quarter: 2024Q4

REPORT INFORMATION
  Report Type: Report from Study
  Country: US (occurrence: US)
  Receive Date: 20241111
  Receipt Date: 20241117
  Transmission Date: 20250115
  Serious: Yes (Hospitalization, Other)
  Sender: UCB
  Company Number: US-UCBSA-2024015585

PATIENT
  Sex: Male
  Weight: 19 kg

DRUGS (9)
  1. FINTEPLA [Suspect]
     Active Substance: FENFLURAMINE
     Indication: Lennox-Gastaut syndrome
     Dosage: 1.8 MILLILITER, 2X/DAY (BID)
     Route: 048
     Dates: start: 20240306
  2. FINTEPLA [Suspect]
     Active Substance: FENFLURAMINE
     Dosage: 2.7 MILLILITER, 2X/DAY (BID)
     Dates: start: 20240306
  3. FINTEPLA [Suspect]
     Active Substance: FENFLURAMINE
     Dosage: 1.5 MILLILITER, 2X/DAY (BID)
     Route: 048
  4. FINTEPLA [Suspect]
     Active Substance: FENFLURAMINE
     Dosage: 1.2 ML Q AM AND 1.5ML Q PM
     Route: 048
  5. FINTEPLA [Suspect]
     Active Substance: FENFLURAMINE
     Dosage: 0.5 MILLILITER, 2X/DAY (BID)
  6. BANZEL [Concomitant]
     Active Substance: RUFINAMIDE
     Indication: Seizure
     Dosage: 7.5 /12 ML
     Route: 048
     Dates: start: 202309
  7. LAMOTRIGINE [Concomitant]
     Active Substance: LAMOTRIGINE
     Indication: Seizure
     Dosage: 125-100 MG
     Route: 048
     Dates: start: 202206
  8. CLOBAZAM [Concomitant]
     Active Substance: CLOBAZAM
     Indication: Seizure
     Dosage: 1-5 ML
     Route: 048
  9. DEPAKOTE [Concomitant]
     Active Substance: DIVALPROEX SODIUM
     Indication: Product used for unknown indication

REACTIONS (7)
  - Hospitalisation [Recovered/Resolved]
  - Seizure [Unknown]
  - Chills [Not Recovered/Not Resolved]
  - Tremor [Recovered/Resolved]
  - Decreased appetite [Recovered/Resolved]
  - Drug ineffective [Unknown]
  - Product use issue [Unknown]

NARRATIVE: CASE EVENT DATE: 20240101
